FAERS Safety Report 9574494 (Version 1)
Quarter: 2013Q4

REPORT INFORMATION
  Report Type: Spontaneous
  Country: US (occurrence: US)
  Receive Date: 20131001
  Receipt Date: 20131001
  Transmission Date: 20140711
  Serious: No
  Sender: FDA-Public Use
  Company Number: US-PURDUE-USA-2012-0084377

PATIENT
  Age: 59 Year
  Sex: Male
  Weight: 102.4 kg

DRUGS (2)
  1. BUTRANS [Suspect]
     Indication: PAIN IN EXTREMITY
     Dosage: 5 MCG/HR, UNK
     Route: 062
     Dates: start: 20120313
  2. BUTRANS [Suspect]
     Indication: ARTHRALGIA

REACTIONS (1)
  - Application site erythema [Recovered/Resolved]
